FAERS Safety Report 16165887 (Version 1)
Quarter: 2019Q2

REPORT INFORMATION
  Report Type: Spontaneous
  Country: FR (occurrence: FR)
  Receive Date: 20190406
  Receipt Date: 20190406
  Transmission Date: 20190711
  Serious: Yes (Life-Threatening, Hospitalization)
  Sender: FDA-Public Use
  Company Number: FR-ACCORD-118169

PATIENT
  Age: 81 Year
  Sex: Male
  Weight: 66 kg

DRUGS (5)
  1. ETOPOSIDE. [Suspect]
     Active Substance: ETOPOSIDE
     Indication: SMALL CELL LUNG CANCER
     Dosage: CYCLE D1-D2-D3 WITH D1  D22
     Route: 042
     Dates: start: 20190109, end: 20190111
  2. CARBOPLATIN. [Suspect]
     Active Substance: CARBOPLATIN
     Indication: SMALL CELL LUNG CANCER
     Route: 042
     Dates: start: 20190109, end: 20190109
  3. DUROGESIC [Concomitant]
     Active Substance: FENTANYL
     Route: 048
  4. VERSATIS [Concomitant]
     Active Substance: LIDOCAINE
     Route: 003
     Dates: start: 20190107
  5. SOLUPRED [Concomitant]
     Route: 048

REACTIONS (2)
  - Pancytopenia [Recovering/Resolving]
  - Septic shock [Recovered/Resolved]

NARRATIVE: CASE EVENT DATE: 20190120
